APPROVED DRUG PRODUCT: ALPRAZOLAM
Active Ingredient: ALPRAZOLAM
Strength: 1MG
Dosage Form/Route: TABLET;ORAL
Application: A090248 | Product #003
Applicant: STRIDES PHARMA INTERNATIONAL AG
Approved: Sep 17, 2010 | RLD: No | RS: No | Type: DISCN